FAERS Safety Report 6080242-2 (Version None)
Quarter: 2009Q1

REPORT INFORMATION
  Report Type: 
  Country: None (occurrence: None)
  Receive Date: 20090217
  Receipt Date: 20090205
  Transmission Date: 20090719
  Serious: Yes (Other)
  Sender: FDA-Public Use
  Company Number: DE-GILEAD-E2B_00000277

PATIENT
  Sex: Female
  Weight: 85 kg

DRUGS (10)
  1. AMBRISENTAN [Suspect]
     Indication: PULMONARY ARTERIAL HYPERTENSION
     Route: 048
     Dates: start: 20081202, end: 20081223
  2. ASPIRIN [Concomitant]
     Route: 048
  3. BISOPROLOL [Concomitant]
     Route: 048
  4. ISDN [Concomitant]
     Route: 048
  5. MOLSIDOMIN [Concomitant]
     Route: 048
  6. RAMIPRIL [Concomitant]
     Route: 048
  7. SIMVASTATIN [Concomitant]
     Route: 048
  8. TORSEMIDE [Concomitant]
     Route: 048
  9. CARBIMAZOL [Concomitant]
     Route: 048
  10. OMEPRAZOLE [Concomitant]
     Route: 048

REACTIONS (4)
  - CARDIAC FAILURE [None]
  - DYSPNOEA EXERTIONAL [None]
  - PULMONARY CONGESTION [None]
  - PULMONARY HYPERTENSION [None]
